FAERS Safety Report 5129853-9 (Version None)
Quarter: 2006Q4

REPORT INFORMATION
  Report Type: 
  Country: None (occurrence: None)
  Receive Date: 20061018
  Receipt Date: 20061006
  Transmission Date: 20070319
  Serious: Yes (Hospitalization)
  Sender: FDA-Public Use
  Company Number: US-SANOFI-SYNTHELABO-F03200600217

PATIENT
  Age: 65 Year
  Sex: Male

DRUGS (8)
  1. OXALIPLATIN [Suspect]
     Indication: METASTATIC GASTRIC CANCER
     Route: 042
  2. ATENOLOL [Concomitant]
     Route: 048
     Dates: start: 20060309
  3. MULTI-VITAMIN [Concomitant]
     Dosage: UNK
     Route: 048
     Dates: start: 20060309
  4. XANAX [Concomitant]
     Route: 048
     Dates: start: 20060525
  5. PREVACID [Concomitant]
     Dosage: UNK
     Route: 048
  6. DOXAZOSIN [Concomitant]
     Dosage: UNK
     Route: 048
  7. BEVACIZUMAB [Suspect]
     Indication: METASTATIC GASTRIC CANCER
     Route: 042
     Dates: start: 20060921, end: 20060921
  8. S-1 [Suspect]
     Indication: METASTATIC GASTRIC CANCER
     Dosage: 14 DAYS X BID (35 MG, 2 IN 1 DAY)
     Route: 048
     Dates: start: 20060921

REACTIONS (1)
  - CONVULSION [None]
